FAERS Safety Report 7823114-2 (Version None)
Quarter: 2011Q4

REPORT INFORMATION
  Report Type: 
  Country: None (occurrence: None)
  Receive Date: 20111019
  Receipt Date: 20111012
  Transmission Date: 20120403
  Serious: Yes (Death, Other)
  Sender: FDA-Public Use
  Company Number: US-BIOGENIDEC-2011BI023732

PATIENT
  Sex: Female

DRUGS (1)
  1. AVONEX [Suspect]
     Indication: MULTIPLE SCLEROSIS
     Route: 030
     Dates: start: 19990104

REACTIONS (4)
  - HYPERTENSION [None]
  - MULTIPLE SCLEROSIS [None]
  - CONVULSION [None]
  - CARDIAC FAILURE CONGESTIVE [None]
